FAERS Safety Report 8256364-4 (Version None)
Quarter: 2012Q2

REPORT INFORMATION
  Report Type: 
  Country: None (occurrence: None)
  Receive Date: 20120403
  Receipt Date: 20120327
  Transmission Date: 20120825
  Serious: Yes (Hospitalization, Other)
  Sender: FDA-Public Use
  Company Number: BE-UCBSA-054220

PATIENT
  Age: 19 Year
  Sex: Female
  Weight: 103 kg

DRUGS (6)
  1. COLITOFALK SUPPO [Concomitant]
     Indication: CROHN'S DISEASE
     Route: 054
  2. IMURAN [Concomitant]
     Indication: CROHN'S DISEASE
     Route: 048
     Dates: start: 20110401
  3. FERROUS CARBONATE [Concomitant]
     Indication: VITAMIN SUPPLEMENTATION
     Dosage: 100 DAILY
     Route: 048
  4. COLITOFALK [Concomitant]
     Indication: CROHN'S DISEASE
     Route: 048
  5. PANTOPRAZOLE [Concomitant]
     Indication: ENTEROSTOMY
     Route: 048
     Dates: start: 20110101
  6. CERTOLIZUMAB PEGOL [Suspect]
     Indication: CROHN'S DISEASE
     Dosage: NO. OF DOSAGE RECIEVED:2
     Route: 058
     Dates: start: 20111223, end: 20120307

REACTIONS (1)
  - HERPES ZOSTER [None]
